FAERS Safety Report 9372901 (Version 2)
Quarter: 2013Q2

REPORT INFORMATION
  Report Type: Spontaneous
  Country: JP (occurrence: None)
  Receive Date: 20130613
  Receipt Date: 20130625
  Transmission Date: 20140414
  Serious: Yes (Other)
  Sender: FDA-Public Use
  Company Number: 0239299

PATIENT
  Age: 19 Year
  Sex: Male

DRUGS (1)
  1. TACHOSIL [Suspect]
     Indication: FISTULA REPAIR
     Dosage: 1 SHEET OF REGULAR SIZE
     Dates: start: 20121118

REACTIONS (3)
  - Pneumothorax [None]
  - Post procedural complication [None]
  - Drug ineffective [None]
